FAERS Safety Report 12708149 (Version 1)
Quarter: 2016Q3

REPORT INFORMATION
  Report Type: Spontaneous
  Country: DE (occurrence: DE)
  Receive Date: 20160901
  Receipt Date: 20160901
  Transmission Date: 20161109
  Serious: Yes (Other)
  Sender: FDA-Public Use
  Company Number: DE-BAYER-2016-168414

PATIENT
  Age: 26 Year
  Sex: Female

DRUGS (1)
  1. JAYDESS [Suspect]
     Active Substance: LEVONORGESTREL
     Indication: CONTRACEPTION
     Dosage: 14 MCG/24HR, CONT
     Route: 015
     Dates: start: 20150723

REACTIONS (9)
  - Generalised anxiety disorder [Unknown]
  - Disturbance in attention [Unknown]
  - Multiple sclerosis [Unknown]
  - Sensory loss [Unknown]
  - Depression [Unknown]
  - Headache [Unknown]
  - Hypoaesthesia [Unknown]
  - Visual impairment [Unknown]
  - Amenorrhoea [Unknown]

NARRATIVE: CASE EVENT DATE: 20160215
